FAERS Safety Report 19824944 (Version 1)
Quarter: 2021Q3

REPORT INFORMATION
  Report Type: Spontaneous
  Country: US (occurrence: US)
  Receive Date: 20210914
  Receipt Date: 20210914
  Transmission Date: 20211014
  Serious: No
  Sender: FDA-Public Use
  Company Number: US-APOTEX-2021AP042492

PATIENT
  Age: 69 Year
  Sex: Male

DRUGS (2)
  1. IMIQUIMOD. [Suspect]
     Active Substance: IMIQUIMOD
     Indication: MALIGNANT MELANOMA IN SITU
     Dosage: 5 PERCENT, FIVE TIMES PER WEEK
     Route: 061
  2. TRETINOIN. [Concomitant]
     Active Substance: TRETINOIN
     Indication: MALIGNANT MELANOMA IN SITU
     Dosage: UNK UNK, QD
     Route: 061

REACTIONS (5)
  - Penile erythema [Recovered/Resolved]
  - Off label use [Unknown]
  - Application site erythema [Recovered/Resolved]
  - Pruritus genital [Recovered/Resolved]
  - Application site pruritus [Recovered/Resolved]
